FAERS Safety Report 8185417 (Version 2)
Quarter: 2012Q4

REPORT INFORMATION
  Report Type: 
  Country: US (occurrence: US)
  Receive Date: 20111018
  Receipt Date: 20120831
  Transmission Date: 20130627
  Serious: No
  Sender: FDA-Public Use
  Company Number: US-ASTRAZENECA-2011SE39261

PATIENT
  Age: 50 Year
  Sex: Female

DRUGS (4)
  1. SYMBICORT PMDI [Suspect]
     Dosage: TWICE DAILY
     Route: 055
  2. SYMBICORT PMDI [Suspect]
     Dosage: ONCE DAILY/TWO PUFFS IN BEFORE BED
     Route: 055
  3. SYMBICORT PMDI [Suspect]
     Route: 055
     Dates: start: 201105
  4. SYMBICORT PMDI [Suspect]
     Dosage: CUTTING DOSAGE IN HALF
     Route: 055

REACTIONS (5)
  - Asthma [Unknown]
  - Dyspnoea [Unknown]
  - Pharyngitis streptococcal [Unknown]
  - Incorrect dose administered [Unknown]
  - Drug dose omission [Unknown]
